FAERS Safety Report 23697365 (Version 1)
Quarter: 2024Q2

REPORT INFORMATION
  Report Type: Spontaneous
  Country: US (occurrence: US)
  Receive Date: 20240402
  Receipt Date: 20240402
  Transmission Date: 20240716
  Serious: No
  Sender: FDA-Public Use
  Company Number: US-TEVA-VS-3171272

PATIENT

DRUGS (3)
  1. LEVOFLOXACIN [Suspect]
     Active Substance: LEVOFLOXACIN
     Indication: Sinusitis
     Dosage: UNKNOWN
     Route: 065
  2. LEVOTHYROXINE [Concomitant]
     Active Substance: LEVOTHYROXINE\LEVOTHYROXINE SODIUM
  3. ATENOLOL [Concomitant]
     Active Substance: ATENOLOL

REACTIONS (5)
  - COVID-19 [Unknown]
  - Sinusitis [Unknown]
  - Sinus congestion [Unknown]
  - Vertigo [Unknown]
  - Vomiting [Unknown]
